FAERS Safety Report 16522419 (Version 14)
Quarter: 2024Q4

REPORT INFORMATION
  Report Type: Spontaneous
  Country: US (occurrence: US)
  Receive Date: 20190703
  Receipt Date: 20241213
  Transmission Date: 20250114
  Serious: Yes (Hospitalization)
  Sender: PFIZER
  Company Number: US-PFIZER INC-2019280984

PATIENT
  Age: 61 Year
  Sex: Female

DRUGS (2)
  1. IBRANCE [Suspect]
     Active Substance: PALBOCICLIB
     Indication: Bone neoplasm
     Dosage: 1 PO(PER ORAL) QD(ONCE A DAY) D1-21 W/7D BREAK
     Route: 048
  2. EFFEXOR [Concomitant]
     Active Substance: VENLAFAXINE HYDROCHLORIDE
     Dosage: 150MG ONCE PER DAY

REACTIONS (4)
  - Cardiac disorder [Unknown]
  - Alopecia [Unknown]
  - Sinusitis [Unknown]
  - Urinary tract infection [Unknown]
